FAERS Safety Report 15859553 (Version 1)
Quarter: 2019Q1

REPORT INFORMATION
  Report Type: Spontaneous
  Country: DE (occurrence: DE)
  Receive Date: 20190123
  Receipt Date: 20190123
  Transmission Date: 20190417
  Serious: Yes (Other)
  Sender: FDA-Public Use
  Company Number: DE-SA-2019SA014008

PATIENT
  Age: 35 Year
  Sex: Female

DRUGS (2)
  1. CHOLESTYRAMIN [Concomitant]
     Active Substance: CHOLESTYRAMINE
     Indication: DETOXIFICATION
     Dosage: 8000 [MG/D ]/ PROBABLY 3X8 G/D AND ONGOING DETOXIFICATIN.
     Route: 048
     Dates: start: 20171207, end: 20171211
  2. AUBAGIO [Suspect]
     Active Substance: TERIFLUNOMIDE
     Indication: MULTIPLE SCLEROSIS
     Dosage: 14 MG, QD
     Route: 048
     Dates: start: 20171024, end: 20171207

REACTIONS (2)
  - Abortion missed [Recovered/Resolved]
  - Foetal exposure during pregnancy [Unknown]
